FAERS Safety Report 18115726 (Version 1)
Quarter: 2020Q3

REPORT INFORMATION
  Report Type: Report from Study
  Country: NL (occurrence: NL)
  Receive Date: 20200805
  Receipt Date: 20200805
  Transmission Date: 20201103
  Serious: Yes (Death, Hospitalization, Other)
  Sender: FDA-Public Use
  Company Number: NL-BAYER-2020-155057

PATIENT
  Age: 77 Year
  Sex: Male

DRUGS (2)
  1. NADROPARIN [Concomitant]
     Active Substance: NADROPARIN
     Indication: COVID-19
     Dosage: 87 IE/KG, BID
  2. CHLOROQUINE. [Suspect]
     Active Substance: CHLOROQUINE
     Indication: COVID-19
     Dosage: UNK
     Dates: end: 202003

REACTIONS (5)
  - Cerebral infarction [None]
  - Organising pneumonia [Fatal]
  - Pulmonary embolism [None]
  - Cerebral ischaemia [None]
  - Acute kidney injury [None]

NARRATIVE: CASE EVENT DATE: 2020
